FAERS Safety Report 5063813-1 (Version None)
Quarter: 2006Q3

REPORT INFORMATION
  Report Type: 
  Country: None (occurrence: None)
  Receive Date: 20060703
  Receipt Date: 20060412
  Transmission Date: 20061208
  Serious: No
  Sender: FDA-Public Use
  Company Number: 2006S1003253

PATIENT
  Age: 64 Year
  Sex: Female

DRUGS (19)
  1. CLOZAPINE [Suspect]
     Dosage: 100 MG;QD;PO
     Route: 048
     Dates: end: 20060411
  2. METFORMIN [Concomitant]
  3. BENZTROPEINE [Concomitant]
  4. HALOPERIDOL [Concomitant]
  5. BISACODYL [Concomitant]
  6. INSULIN [Concomitant]
  7. POTASSIUM CHLORIDE [Concomitant]
  8. LISINOPRIL [Concomitant]
  9. TRAZODONE HCL [Concomitant]
  10. CLONIDINE [Concomitant]
  11. FUROSEMIDE [Concomitant]
  12. DOCUSATE SODIUM/SENNA [Concomitant]
  13. VALPROIC ACID [Concomitant]
  14. GLYCEROL/LANOLIN/MINERAL OIL EMULSION [Concomitant]
  15. ATORVASTATIN CALCIUM [Concomitant]
  16. CLOPIDOGREL BISULFATE [Concomitant]
  17. LEVOTHYROXINE SODIUM [Concomitant]
  18. VALSARTAN [Concomitant]
  19. VITAMINS NOS [Concomitant]

REACTIONS (2)
  - GRANULOCYTOPENIA [None]
  - LEUKOPENIA [None]
